FAERS Safety Report 9985627 (Version 1)
Quarter: 2014Q1

REPORT INFORMATION
  Report Type: Spontaneous
  Country: TW (occurrence: TW)
  Receive Date: 20140307
  Receipt Date: 20140307
  Transmission Date: 20141002
  Serious: Yes (Other)
  Sender: FDA-Public Use
  Company Number: TW-BRISTOL-MYERS SQUIBB COMPANY-20344818

PATIENT
  Age: 79 Year
  Sex: Male

DRUGS (1)
  1. BARACLUDE [Suspect]
     Dosage: BUT THEN WAS REDUCED TO 0. 5MG EVERY 2ND DAY LATER
     Route: 048
     Dates: start: 20131001

REACTIONS (2)
  - Hepatitis B DNA increased [Unknown]
  - Renal impairment [Unknown]
